FAERS Safety Report 8852976 (Version 2)
Quarter: 2012Q4

REPORT INFORMATION
  Report Type: 
  Country: US (occurrence: US)
  Receive Date: 20121022
  Receipt Date: 20121025
  Transmission Date: 20130627
  Serious: Yes (Hospitalization)
  Sender: FDA-Public Use
  Company Number: US-GILEAD-2012-0063397

PATIENT
  Sex: Female

DRUGS (3)
  1. LETAIRIS [Suspect]
     Indication: LEFT VENTRICULAR FAILURE
     Dosage: 5 mg, QD
     Route: 048
     Dates: start: 20111201
  2. LETAIRIS [Suspect]
     Indication: PULMONARY HYPERTENSION
  3. ADCIRCA [Concomitant]

REACTIONS (1)
  - Pneumonia [Unknown]
